FAERS Safety Report 7270673-7 (Version None)
Quarter: 2011Q1

REPORT INFORMATION
  Report Type: 
  Country: None (occurrence: None)
  Receive Date: 20110202
  Receipt Date: 20110128
  Transmission Date: 20110831
  Serious: Yes (Hospitalization)
  Sender: FDA-Public Use
  Company Number: A0911262A

PATIENT
  Age: 74 Year
  Sex: Male

DRUGS (4)
  1. XOPENEX [Concomitant]
     Route: 055
  2. BUDESONIDE [Concomitant]
     Route: 055
  3. PROMACTA [Suspect]
     Dosage: 25MG PER DAY
     Route: 048
     Dates: start: 20091210
  4. UNKNOWN [Concomitant]

REACTIONS (2)
  - ASTHMA [None]
  - PNEUMONIA [None]
